FAERS Safety Report 7288514-0 (Version None)
Quarter: 2011Q1

REPORT INFORMATION
  Report Type: 
  Country: None (occurrence: None)
  Receive Date: 20110207
  Receipt Date: 20110207
  Transmission Date: 20110831
  Serious: Yes (Other)
  Sender: FDA-Public Use
  Company Number: None

PATIENT
  Age: 56 Year
  Sex: Female

DRUGS (2)
  1. PEGALAYTED INTERFERON [Suspect]
     Indication: HEPATITIS C
  2. RIBAVIRIN [Suspect]

REACTIONS (10)
  - AMNESIA [None]
  - AGEUSIA [None]
  - HAIR TEXTURE ABNORMAL [None]
  - DEPRESSION [None]
  - ASTHENIA [None]
  - DYSPNOEA [None]
  - VOMITING [None]
  - ANAEMIA [None]
  - FATIGUE [None]
  - PAIN [None]
